FAERS Safety Report 12635845 (Version 1)
Quarter: 2016Q3

REPORT INFORMATION
  Report Type: Spontaneous
  Country: IT (occurrence: IT)
  Receive Date: 20160809
  Receipt Date: 20160809
  Transmission Date: 20161109
  Serious: Yes (Death, Hospitalization)
  Sender: FDA-Public Use
  Company Number: IT-ROCHE-1809500

PATIENT
  Age: 48 Year
  Sex: Female
  Weight: 65 kg

DRUGS (9)
  1. DOCETAXEL. [Suspect]
     Active Substance: DOCETAXEL
     Indication: BREAST CANCER
     Dosage: ^160 MG / 8 ML -VIAL (GLASS) - 8 ML^ 1 VIAL
     Route: 042
     Dates: start: 20160715, end: 20160715
  2. TAMOXIFEN CITRATE. [Concomitant]
     Active Substance: TAMOXIFEN CITRATE
     Indication: BREAST CANCER
     Route: 048
  3. SEQUACOR [Concomitant]
     Active Substance: BISOPROLOL
     Indication: HYPERTENSION
     Dosage: 5 MG FILM-COATED TABLETS^ 28 TABLETS
     Route: 048
  4. PERJETA [Suspect]
     Active Substance: PERTUZUMAB
     Indication: BREAST CANCER
     Dosage: 420 MG -VIAL (GLASS) - 30 MG/ML - 1 VIAL
     Route: 042
     Dates: start: 20160715, end: 20160715
  5. MATRIFEN [Concomitant]
     Active Substance: FENTANYL
     Indication: ANALGESIC THERAPY
     Dosage: ^25 MCG/HOUR TRANSDERMAL PATCHES^ 3 PATCHES
     Route: 062
  6. DECADRON (ITALY) [Concomitant]
     Dosage: ^4 MG / 1 ML -VIAL CONTAINING 1 ML
     Route: 030
  7. CLEXANE [Concomitant]
     Active Substance: ENOXAPARIN SODIUM
     Dosage: 6000 I.U.AXA/0.6 ML-10 PRE-FILLED SYRINGES -0.6 ML
     Route: 058
  8. EUTIROX [Concomitant]
     Active Substance: LEVOTHYROXINE SODIUM
     Indication: HYPOTHYROIDISM
     Dosage: 25 MICROGRAM TABLETS 50 TABLETS
     Route: 048
  9. HERCEPTIN [Suspect]
     Active Substance: TRASTUZUMAB
     Indication: BREAST CANCER
     Dosage: 600 MG / 5 ML - 6 ML VIAL (GLASS) - 1 VIAL
     Route: 042
     Dates: start: 20160715, end: 20160715

REACTIONS (4)
  - Interstitial lung disease [Fatal]
  - Respiratory failure [Fatal]
  - Dyspnoea [Fatal]
  - Neutropenia [Unknown]

NARRATIVE: CASE EVENT DATE: 20160726
